FAERS Safety Report 7484366-4 (Version None)
Quarter: 2011Q2

REPORT INFORMATION
  Report Type: 
  Country: None (occurrence: None)
  Receive Date: 20110517
  Receipt Date: 20110510
  Transmission Date: 20111010
  Serious: Yes (Hospitalization)
  Sender: FDA-Public Use
  Company Number: FR-BRISTOL-MYERS SQUIBB COMPANY-15742133

PATIENT
  Age: 59 Year
  Sex: Male

DRUGS (15)
  1. RAMIPRIL [Suspect]
     Route: 048
  2. PROGRAF [Concomitant]
     Dosage: 1 CAPSULE
     Route: 048
  3. CELLCEPT [Concomitant]
     Dosage: 2 TABLETS
     Route: 048
  4. ATORVASTATIN CALCIUM [Concomitant]
     Dosage: 1 FILM-COATED TABLET
     Route: 048
  5. SODIUM BICARBONATE [Concomitant]
  6. ASPIRIN [Concomitant]
     Dosage: POWDER FOR ORAL SOLUTION
     Route: 048
  7. UVEDOSE [Concomitant]
     Dosage: 1 AMPULE ORALLY
     Route: 048
  8. PANTOPRAZOLE [Concomitant]
  9. LASIX [Concomitant]
     Dosage: 1 SCORED TABLET
     Route: 048
  10. ALUMINUM HYDROXIDE AND MAGNESIUM TRISILICATE [Concomitant]
  11. ALLOPURINOL [Concomitant]
     Dosage: 1 TABLET
  12. DELURSAN [Concomitant]
     Dosage: 1 FILM-COATED TABLET
     Route: 048
  13. IRBESARTAN [Suspect]
     Route: 048
  14. ROCALTROL [Concomitant]
     Dosage: 1 CAPSULE
     Route: 048
  15. TIORFAN [Concomitant]

REACTIONS (2)
  - ANURIA [None]
  - RENAL FAILURE ACUTE [None]
